FAERS Safety Report 15896868 (Version 1)
Quarter: 2019Q1

REPORT INFORMATION
  Report Type: Report from Study
  Country: US (occurrence: US)
  Receive Date: 20190131
  Receipt Date: 20190131
  Transmission Date: 20190417
  Serious: Yes (Other)
  Sender: FDA-Public Use
  Company Number: US-TEVA-2019-US-1004332

PATIENT
  Sex: Male

DRUGS (1)
  1. DIFLUNISAL. [Suspect]
     Active Substance: DIFLUNISAL
     Indication: CARDIAC AMYLOIDOSIS
     Dosage: 500 MILLIGRAM DAILY;
     Route: 065

REACTIONS (1)
  - Gastritis erosive [Unknown]
